FAERS Safety Report 18964574 (Version 1)
Quarter: 2021Q1

REPORT INFORMATION
  Report Type: Spontaneous
  Country: US (occurrence: US)
  Receive Date: 20210303
  Receipt Date: 20210303
  Transmission Date: 20210420
  Serious: No
  Sender: FDA-Public Use
  Company Number: US-PFIZER INC-2016182374

PATIENT
  Age: 75 Year
  Sex: Female

DRUGS (41)
  1. PROMETHAZINE WITH CODEINE [Concomitant]
     Active Substance: CODEINE PHOSPHATE\PROMETHAZINE HYDROCHLORIDE
     Dosage: UNK
  2. LEVOTHROID [Concomitant]
     Active Substance: LEVOTHYROXINE SODIUM
     Dosage: 137 UG, 1X/DAY, (1 BY MOUTH ONCE DAILY)
     Route: 048
     Dates: start: 20120910
  3. BACLOFEN. [Concomitant]
     Active Substance: BACLOFEN
     Dosage: 10 MG, 3X/DAY, (TAKE 1 BY MOUTH THREE TIMES DAILY)
     Route: 048
     Dates: start: 20120910
  4. ATROVENT [Concomitant]
     Active Substance: IPRATROPIUM BROMIDE
     Dosage: 2 DF, 3X/DAY ((0.06 % SOLN (IPRATROPIUM BROMIDE), 2 SPRAYS TID)
     Dates: start: 20121002
  5. GLIMEPIRIDE. [Concomitant]
     Active Substance: GLIMEPIRIDE
     Dosage: 4 MG, 2X/DAY, (TAKE 1 BY MOUTH TWICE A DAY)
     Route: 048
     Dates: start: 20131108
  6. COZAAR [Concomitant]
     Active Substance: LOSARTAN POTASSIUM
     Dosage: 100 MG, 1X/DAY, (1 BY MOUTH ONCE DAILY)
     Route: 048
     Dates: start: 20120910
  7. AMARYL [Concomitant]
     Active Substance: GLIMEPIRIDE
     Dosage: 4 MG, 2X/DAY, (TAKE 1 TAB BY MOUTH TWICE A DAY)
     Route: 048
     Dates: start: 20131105
  8. TRULICITY [Concomitant]
     Active Substance: DULAGLUTIDE
     Dosage: UNK, WEEKLY
     Route: 058
     Dates: start: 20150716
  9. PROMETHAZINE HCL [Concomitant]
     Active Substance: PROMETHAZINE HYDROCHLORIDE
     Dosage: 25 MG, EVERY 4 HRS
     Route: 048
     Dates: start: 20160215
  10. OXYBUTYNIN CHLORIDE. [Concomitant]
     Active Substance: OXYBUTYNIN CHLORIDE
     Dosage: 5 MG, 2X/DAY, (TAKE 1 BY MOUTH TWICE A DAY)
     Route: 048
     Dates: start: 20160226
  11. NORVASC [Concomitant]
     Active Substance: AMLODIPINE BESYLATE
     Dosage: 5 MG, 1X/DAY, (TAKE 1 BY MOUTH ONCE DAILY)
     Route: 048
     Dates: start: 20161110
  12. LYRICA [Suspect]
     Active Substance: PREGABALIN
     Dosage: 150 MG, 3X/DAY
     Route: 048
     Dates: start: 20140529
  13. LEVOTHYROXINE. [Concomitant]
     Active Substance: LEVOTHYROXINE
     Dosage: 137 UG, UNK
  14. OMEPRAZOLE. [Concomitant]
     Active Substance: OMEPRAZOLE
     Dosage: 40 MG, 1X/DAY, (1 BY MOUTH DAILY)
     Route: 048
     Dates: start: 20140529
  15. ATORVASTATIN [Concomitant]
     Active Substance: ATORVASTATIN
     Dosage: 80 MG, UNK
  16. CLONAZEPAM. [Concomitant]
     Active Substance: CLONAZEPAM
     Dosage: 1 MG, 1X/DAY, (1 BY MOUTH QHS)
     Route: 048
     Dates: start: 20121002
  17. NORCO [Concomitant]
     Active Substance: ACETAMINOPHEN\HYDROCODONE BITARTRATE
     Dosage: 1 DF, AS NEEDED, [HYDROCODONE 7.5 MG/ACETAMINOPHEN 325 MG] (1 BY MOUTH ONCE DAILY 8 HOURS AS NEEDED)
     Route: 048
     Dates: start: 20121231
  18. DULOXETINE HCL [Concomitant]
     Active Substance: DULOXETINE HYDROCHLORIDE
     Dosage: 60 MG, 1X/DAY, (60 MG ORAL CPEP (DULOXETINE HCL), BY MOUTH ONCE DAILY)
     Route: 048
     Dates: start: 20160202
  19. DULOXETINE. [Concomitant]
     Active Substance: DULOXETINE
     Dosage: 60 MG, UNK
  20. IPRATROPIUM [Concomitant]
     Active Substance: IPRATROPIUM
     Dosage: UNK
  21. VENTOLIN HFA [Concomitant]
     Active Substance: ALBUTEROL SULFATE
     Dosage: 2 DF, 4X/DAY (2 PUFFS EVERY 6 HOURS)
     Route: 045
     Dates: start: 20120910
  22. LYRICA [Suspect]
     Active Substance: PREGABALIN
     Indication: FIBROMYALGIA
     Dosage: 150 MG, 3X/DAY
     Route: 048
     Dates: start: 2012
  23. LOSARTAN. [Concomitant]
     Active Substance: LOSARTAN
     Dosage: 100 MG, UNK
  24. LORAZEPAM. [Concomitant]
     Active Substance: LORAZEPAM
     Dosage: 1 MG, UNK
  25. ROPINIROLE. [Concomitant]
     Active Substance: ROPINIROLE
     Dosage: 2 MG, UNK
  26. LANTUS [Concomitant]
     Active Substance: INSULIN GLARGINE
     Dosage: 40 IU, 2X/DAY, (100 UNIT/ML SC SOPN (INSULIN GLARGINE), 40 UNITS TWICE A DAY)
     Route: 058
     Dates: start: 20150616
  27. VITAMIN D3 [Concomitant]
     Active Substance: CHOLECALCIFEROL
     Dosage: 1000 IU, UNK
     Route: 048
     Dates: start: 20151217
  28. CALCITRATE PLUS D [Concomitant]
     Dosage: 600 MG, 1X/DAY
     Dates: start: 20151217
  29. GLIMEPIRIDE. [Concomitant]
     Active Substance: GLIMEPIRIDE
     Dosage: 4 MG, UNK
  30. LORAZEPAM. [Concomitant]
     Active Substance: LORAZEPAM
     Dosage: 1 MG, 2X/DAY, (1 BY MOUTH TWICE A DAY)
     Route: 048
     Dates: start: 20160202
  31. CLONAZEPAM. [Concomitant]
     Active Substance: CLONAZEPAM
     Dosage: 1 MG, UNK
     Route: 048
  32. LIPITOR [Concomitant]
     Active Substance: ATORVASTATIN CALCIUM
     Dosage: 80 MG, 1X/DAY
     Route: 048
     Dates: start: 20121203
  33. ROPINIROLE HCL [Concomitant]
     Active Substance: ROPINIROLE HYDROCHLORIDE
     Dosage: 2 MG, 1X/DAY, (1 BY MOUTH QHS )
     Route: 048
     Dates: start: 20121113
  34. HYDROXYCHLOROQUINE SULFATE. [Concomitant]
     Active Substance: HYDROXYCHLOROQUINE SULFATE
     Dosage: 200 MG, 2X/DAY, (1 BY MOUTH TWICE A DAY WITH MEALS)
     Route: 048
     Dates: start: 20160202
  35. LYRICA [Suspect]
     Active Substance: PREGABALIN
     Indication: DIABETIC NEUROPATHY
     Dosage: 150 MG, (TWO OF THE 75MG TO ADD UP TO THE 150MG)
     Route: 048
  36. OMEPRAZOLE. [Concomitant]
     Active Substance: OMEPRAZOLE
     Dosage: 40 MG, UNK
  37. AMLODIPINE [Concomitant]
     Active Substance: AMLODIPINE BESYLATE
     Dosage: 10 MG, UNK
  38. OXYBUTYNIN. [Concomitant]
     Active Substance: OXYBUTYNIN CHLORIDE
     Dosage: 5 MG, UNK
  39. PLAQUENIL [Concomitant]
     Active Substance: HYDROXYCHLOROQUINE SULFATE
     Dosage: 200 MG, UNK
  40. PROAIR HFA [Concomitant]
     Active Substance: ALBUTEROL SULFATE
     Dosage: UNK
  41. TRIAMCINOLONE ACETONIDE. [Concomitant]
     Active Substance: TRIAMCINOLONE ACETONIDE
     Dosage: UNK UNK, 2X/DAY, (APPLY BID)
     Route: 061
     Dates: start: 20160202

REACTIONS (2)
  - Fear [Unknown]
  - Intentional product misuse [Unknown]
